FAERS Safety Report 18165084 (Version 2)
Quarter: 2020Q3

REPORT INFORMATION
  Report Type: Report from Study
  Country: None (occurrence: CA)
  Receive Date: 20200819
  Receipt Date: 20200921
  Transmission Date: 20201103
  Serious: Yes (Other)
  Sender: FDA-Public Use
  Company Number: CA-ABBVIE-20K-028-3528248-00

PATIENT
  Age: 45 Year
  Sex: Female
  Weight: 57.66 kg

DRUGS (1)
  1. HUMIRA [Suspect]
     Active Substance: ADALIMUMAB
     Indication: RHEUMATOID ARTHRITIS
     Route: 058
     Dates: start: 20200713

REACTIONS (6)
  - Overlap syndrome [Unknown]
  - Dizziness [Recovering/Resolving]
  - Skin lesion [Unknown]
  - Cutaneous lupus erythematosus [Not Recovered/Not Resolved]
  - Fatigue [Recovering/Resolving]
  - Rash pruritic [Not Recovered/Not Resolved]

NARRATIVE: CASE EVENT DATE: 2020
